FAERS Safety Report 11316420 (Version 3)
Quarter: 2015Q4

REPORT INFORMATION
  Report Type: Spontaneous
  Country: US (occurrence: US)
  Receive Date: 20150728
  Receipt Date: 20151113
  Transmission Date: 20160304
  Serious: Yes (Death, Hospitalization)
  Sender: FDA-Public Use
  Company Number: US-UNITED THERAPEUTICS-UNT-2015-008940

PATIENT
  Age: 59 Year
  Sex: Male
  Weight: 92.52 kg

DRUGS (12)
  1. REMODULIN [Suspect]
     Active Substance: TREPROSTINIL
     Dosage: 0.015 ?G/KG, CONTINUING
     Route: 041
  2. KLOR-CON [Concomitant]
     Active Substance: POTASSIUM CHLORIDE
     Indication: PRODUCT USED FOR UNKNOWN INDICATION
     Dosage: 20 MEQ, QD
     Route: 048
  3. REMODULIN [Suspect]
     Active Substance: TREPROSTINIL
     Indication: PULMONARY HYPERTENSION
     Dosage: 0.06 ?G/KG, CONTINUING
     Route: 041
     Dates: start: 20141222, end: 20150807
  4. REMODULIN [Suspect]
     Active Substance: TREPROSTINIL
     Dosage: 0.053 ?G/KG, CONTINUING
     Route: 041
     Dates: start: 20150302
  5. NORCO [Concomitant]
     Active Substance: ACETAMINOPHEN\HYDROCODONE BITARTRATE
     Indication: PAIN
     Dosage: 1 TAB, Q6H
     Route: 048
  6. LEVOTHYROXINE. [Concomitant]
     Active Substance: LEVOTHYROXINE
     Indication: PRODUCT USED FOR UNKNOWN INDICATION
     Dosage: 75 ?G, QD
     Route: 048
  7. REVATIO [Concomitant]
     Active Substance: SILDENAFIL CITRATE
     Indication: PRODUCT USED FOR UNKNOWN INDICATION
     Dosage: 60 MG, TID
     Route: 048
  8. OXYGEN. [Concomitant]
     Active Substance: OXYGEN
     Indication: PRODUCT USED FOR UNKNOWN INDICATION
     Dosage: 2 L, EVERY MINUTE WITH EXERTION
     Route: 045
  9. REMODULIN [Suspect]
     Active Substance: TREPROSTINIL
     Dosage: 0.056 ?G/KG, CONTINUING
     Route: 041
  10. ADCIRCA [Concomitant]
     Active Substance: TADALAFIL
     Indication: PRODUCT USED FOR UNKNOWN INDICATION
     Dosage: UNK
  11. LASIX [Concomitant]
     Active Substance: FUROSEMIDE
     Indication: PRODUCT USED FOR UNKNOWN INDICATION
     Dosage: 120 MG IN THE MORNING AND 80 MG IN THE EVENING
     Route: 048
  12. OPSUMIT [Concomitant]
     Active Substance: MACITENTAN
     Indication: PRODUCT USED FOR UNKNOWN INDICATION
     Dosage: 10 MG, QD
     Route: 048

REACTIONS (7)
  - Pulmonary oedema [Unknown]
  - Cardiac failure congestive [Fatal]
  - Pulmonary veno-occlusive disease [Unknown]
  - Hypoxia [Unknown]
  - Acute kidney injury [Unknown]
  - Pleural effusion [Unknown]
  - Product use issue [Unknown]

NARRATIVE: CASE EVENT DATE: 201507
